FAERS Safety Report 9026550 (Version 2)
Quarter: 2013Q1

REPORT INFORMATION
  Report Type: Spontaneous
  Country: CN (occurrence: CN)
  Receive Date: 20130123
  Receipt Date: 20130125
  Transmission Date: 20140127
  Serious: Yes (Hospitalization)
  Sender: FDA-Public Use
  Company Number: CN-009507513-1301CHN009745

PATIENT
  Age: 75 Year
  Sex: Male

DRUGS (1)
  1. SINGULAIR [Suspect]
     Indication: ASTHMA
     Dosage: UNK
     Route: 048

REACTIONS (3)
  - Wheezing [Recovered/Resolved]
  - Pertussis [Recovered/Resolved]
  - Condition aggravated [None]
